FAERS Safety Report 4287415-X (Version None)
Quarter: 2004Q1

REPORT INFORMATION
  Report Type: 
  Country: None (occurrence: None)
  Receive Date: 20040205
  Receipt Date: 20040115
  Transmission Date: 20041129
  Serious: Yes (Other)
  Sender: FDA-Public Use
  Company Number: USA031255425

PATIENT
  Age: 87 Year
  Sex: Female
  Weight: 55 kg

DRUGS (8)
  1. FORTEO [Suspect]
     Indication: OSTEOPOROSIS
     Dosage: 20 UG/DAY
     Dates: start: 20031009
  2. FORTEO [Suspect]
     Indication: SPINAL COMPRESSION FRACTURE
     Dosage: 20 UG/DAY
     Dates: start: 20031009
  3. ATENOLOL [Concomitant]
  4. NEXIUM [Concomitant]
  5. VASOTEC [Concomitant]
  6. HYDROCHLOROTHIAZIDE [Concomitant]
  7. CALCIUM [Concomitant]
  8. ROCALTROL [Concomitant]

REACTIONS (4)
  - BALANCE DISORDER [None]
  - CONTUSION [None]
  - FALL [None]
  - RIB FRACTURE [None]
